FAERS Safety Report 12137328 (Version 3)
Quarter: 2016Q2

REPORT INFORMATION
  Report Type: Spontaneous
  Country: US (occurrence: US)
  Receive Date: 20160302
  Receipt Date: 20160426
  Transmission Date: 20160815
  Serious: Yes (Hospitalization, Other)
  Sender: FDA-Public Use
  Company Number: US-SMITH AND NEPHEW, INC-2016SMT00158

PATIENT
  Age: 73 Year
  Sex: Male

DRUGS (7)
  1. UNSPECIFIED SUGAR PILL [Concomitant]
     Dosage: UNK, 1X/DAY
  2. PLAVIX [Concomitant]
     Active Substance: CLOPIDOGREL BISULFATE
  3. REGRANEX [Suspect]
     Active Substance: BECAPLERMIN
     Indication: WOUND
     Dosage: UNK, 2X/WEEK
     Route: 061
     Dates: start: 201601, end: 20160209
  4. UNSPECIFIED BETA BLOCKERS [Concomitant]
  5. UNSPECIFIED DIURETICS [Concomitant]
  6. ASPIRIN. [Concomitant]
     Active Substance: ASPIRIN
     Dosage: UNK, 1X/DAY
  7. UNSPECIFIED HEART PILL [Concomitant]
     Dosage: UNK, 1X/DAY

REACTIONS (4)
  - Inappropriate schedule of drug administration [Unknown]
  - Hospitalisation [Unknown]
  - Toe amputation [Recovered/Resolved with Sequelae]
  - Staphylococcal osteomyelitis [Recovered/Resolved with Sequelae]

NARRATIVE: CASE EVENT DATE: 201601
